FAERS Safety Report 9347494 (Version 2)
Quarter: 2013Q2

REPORT INFORMATION
  Report Type: Report from Study
  Country: US (occurrence: US)
  Receive Date: 20130614
  Receipt Date: 20130620
  Transmission Date: 20140414
  Serious: Yes (Death)
  Sender: FDA-Public Use
  Company Number: US-ROCHE-1236687

PATIENT
  Sex: Male

DRUGS (4)
  1. AVASTIN [Suspect]
     Indication: GLIOBLASTOMA
     Dosage: X4, BASED ON 15 MG/KG
     Route: 042
     Dates: start: 20121003
  2. AVASTIN [Suspect]
     Route: 042
     Dates: start: 20121025
  3. IRINOTECAN [Concomitant]
     Dosage: X4
     Route: 042
  4. HYOSCYAMINE [Concomitant]
     Dosage: PRE- IRINOTECAN
     Route: 065

REACTIONS (2)
  - Death [Fatal]
  - Disease progression [Unknown]
